FAERS Safety Report 7432437-0 (Version None)
Quarter: 2011Q2

REPORT INFORMATION
  Report Type: 
  Country: None (occurrence: None)
  Receive Date: 20110414
  Receipt Date: 20110405
  Transmission Date: 20111010
  Serious: Yes (Hospitalization)
  Sender: FDA-Public Use
  Company Number: FK201100693

PATIENT
  Age: 16 Year

DRUGS (10)
  1. BLEOMYCIN SULFATE [Suspect]
     Indication: HODGKIN'S DISEASE
  2. CYCLOPHOSPHAMIDE (MANUFACTURER UNKNOWN) (CYCLOPHOSPHAMIDE) [Suspect]
     Indication: HODGKIN'S DISEASE
  3. VINBLASTINE SULFATE [Concomitant]
  4. DOXORUBICIN HCL [Suspect]
     Indication: HODGKIN'S DISEASE
  5. PROCARBAZINE HYDROCHLORIDE [Concomitant]
  6. ETOPOSIDE [Suspect]
     Indication: HODGKIN'S DISEASE
  7. PREDNISONE [Concomitant]
  8. DACARBAZINE [Suspect]
     Indication: HODGKIN'S DISEASE
  9. VINCRISTINE [Concomitant]
  10. BUSULFAN [Concomitant]

REACTIONS (5)
  - PROGRESSIVE MULTIFOCAL LEUKOENCEPHALOPATHY [None]
  - PANCYTOPENIA [None]
  - SPEECH DISORDER [None]
  - APATHY [None]
  - MUSCULAR WEAKNESS [None]
